FAERS Safety Report 16764380 (Version 1)
Quarter: 2019Q3

REPORT INFORMATION
  Report Type: Report from Study
  Country: US (occurrence: US)
  Receive Date: 20190902
  Receipt Date: 20190902
  Transmission Date: 20191005
  Serious: No
  Sender: FDA-Public Use
  Company Number: PHEH2019US035944

PATIENT
  Sex: Female

DRUGS (2)
  1. LEVOBUNOLOL [Suspect]
     Active Substance: LEVOBUNOLOL
     Dosage: UNK
     Route: 047
     Dates: start: 20171218
  2. LEVOBUNOLOL [Suspect]
     Active Substance: LEVOBUNOLOL
     Indication: PRODUCT USED FOR UNKNOWN INDICATION
     Dosage: UNK
     Route: 047
     Dates: start: 20161108

REACTIONS (1)
  - Drug ineffective [Unknown]
